FAERS Safety Report 14280340 (Version 2)
Quarter: 2018Q4

REPORT INFORMATION
  Report Type: Spontaneous
  Country: FR (occurrence: FR)
  Receive Date: 20171213
  Receipt Date: 20181127
  Transmission Date: 20190204
  Serious: Yes (Other)
  Sender: FDA-Public Use
  Company Number: FR-ROCHE-2038232

PATIENT
  Sex: Male
  Weight: 10 kg

DRUGS (1)
  1. ZELBORAF [Suspect]
     Active Substance: VEMURAFENIB
     Indication: LANGERHANS^ CELL HISTIOCYTOSIS
     Route: 065
     Dates: start: 201511

REACTIONS (6)
  - Photosensitivity reaction [Recovered/Resolved]
  - Intentional product use issue [Unknown]
  - Solar dermatitis [Recovered/Resolved]
  - Off label use [Unknown]
  - Erythema [Recovered/Resolved]
  - Photoonycholysis [Recovered/Resolved]
